FAERS Safety Report 4309834-5 (Version None)
Quarter: 2004Q1

REPORT INFORMATION
  Report Type: 
  Country: None (occurrence: None)
  Receive Date: 20040303
  Receipt Date: 20031014
  Transmission Date: 20041129
  Serious: Yes (Death, Hospitalization, Other)
  Sender: FDA-Public Use
  Company Number: 200311184JP

PATIENT
  Age: 779 Month
  Sex: Male
  Weight: 65 kg

DRUGS (17)
  1. TAXOTERE [Suspect]
     Indication: LUNG NEOPLASM MALIGNANT
     Route: 041
     Dates: start: 20030909, end: 20030909
  2. KYTRIL [Concomitant]
     Route: 041
     Dates: start: 20030729, end: 20030825
  3. DECADRON [Concomitant]
     Route: 041
     Dates: start: 20030729, end: 20030825
  4. EUGLUCON [Concomitant]
     Route: 048
     Dates: start: 20030703, end: 20031006
  5. PURSENNID [Concomitant]
     Route: 048
     Dates: start: 20030703, end: 20031006
  6. LOXOPROFEN [Concomitant]
     Route: 048
     Dates: start: 20030703, end: 20031006
  7. ACECOL [Concomitant]
     Route: 048
     Dates: start: 20030703, end: 20031006
  8. ADALAT [Concomitant]
     Route: 048
     Dates: start: 20030703, end: 20031006
  9. CIBENOL [Concomitant]
     Route: 048
     Dates: start: 20030703, end: 20031006
  10. RIZE [Concomitant]
     Route: 048
     Dates: start: 20030703, end: 20031006
  11. SELBEX [Concomitant]
     Route: 048
     Dates: start: 20030703, end: 20031006
  12. GASTER [Concomitant]
     Route: 048
     Dates: start: 20030703, end: 20031006
  13. ADONA [Concomitant]
     Route: 048
     Dates: start: 20030828, end: 20031006
  14. TRANSAMIN [Concomitant]
     Route: 048
     Dates: start: 20030828, end: 20031006
  15. CEREKINON [Concomitant]
     Route: 048
     Dates: start: 20030829, end: 20031006
  16. PRIMPERAN INJ [Concomitant]
     Route: 048
     Dates: start: 20030829, end: 20031006
  17. MS CONTIN [Concomitant]
     Route: 048
     Dates: start: 20030714, end: 20031007

REACTIONS (4)
  - ACUTE RESPIRATORY FAILURE [None]
  - DRUG HYPERSENSITIVITY [None]
  - LYMPHOCYTE STIMULATION TEST POSITIVE [None]
  - PNEUMONIA [None]
